FAERS Safety Report 8846440 (Version 1)
Quarter: 2012Q4

REPORT INFORMATION
  Report Type: 
  Country: BR (occurrence: BR)
  Receive Date: 20121017
  Receipt Date: 20121017
  Transmission Date: 20130627
  Serious: Yes (Hospitalization, Disabling)
  Sender: FDA-Public Use
  Company Number: BR-ASTRAZENECA-2012SE17391

PATIENT
  Age: 75 Year
  Sex: Female

DRUGS (1)
  1. ATACAND HCT [Suspect]
     Dosage: 16/ 12.5 MG
     Route: 048

REACTIONS (2)
  - Hypoaesthesia [Recovering/Resolving]
  - Gait disturbance [Recovering/Resolving]
